APPROVED DRUG PRODUCT: SAPHRIS
Active Ingredient: ASENAPINE MALEATE
Strength: EQ 2.5MG BASE
Dosage Form/Route: TABLET;SUBLINGUAL
Application: N022117 | Product #003 | TE Code: AB
Applicant: ALLERGAN SALES LLC
Approved: Mar 12, 2015 | RLD: Yes | RS: No | Type: RX

PATENTS:
Patent 7741358 | Expires: Apr 6, 2026
Patent 7741358 | Expires: Apr 6, 2026
Patent 8022228 | Expires: Apr 6, 2026
Patent 7741358*PED | Expires: Oct 6, 2026
Patent 8022228*PED | Expires: Oct 6, 2026